FAERS Safety Report 4555695-9 (Version None)
Quarter: 2005Q1

REPORT INFORMATION
  Report Type: 
  Country: None (occurrence: None)
  Receive Date: 20050118
  Receipt Date: 20050105
  Transmission Date: 20050727
  Serious: Yes (Other)
  Sender: FDA-Public Use
  Company Number: 2005006128

PATIENT
  Sex: Female

DRUGS (1)
  1. COOL MINT LISTERINE (MENTHOL, METHYL SALICYLATE, EUCALYPTOL, THYMOL) [Suspect]
     Dosage: LITTLE BIT, DILUTED, ORAL
     Route: 048

REACTIONS (3)
  - CATARACT [None]
  - CATARACT OPERATION COMPLICATION [None]
  - POST PROCEDURAL COMPLICATION [None]
